FAERS Safety Report 7475044-6 (Version None)
Quarter: 2011Q2

REPORT INFORMATION
  Report Type: 
  Country: None (occurrence: None)
  Receive Date: 20110512
  Receipt Date: 20110428
  Transmission Date: 20111010
  Serious: Yes (Hospitalization)
  Sender: FDA-Public Use
  Company Number: US-JNJFOC-20100904560

PATIENT
  Sex: Female
  Weight: 29.1 kg

DRUGS (5)
  1. NUTROPIN [Concomitant]
  2. MERCAPTOPURINE [Concomitant]
  3. REMICADE [Suspect]
     Indication: CROHN'S DISEASE
     Route: 042
  4. REMICADE [Suspect]
     Route: 042
  5. CIMZIA [Concomitant]

REACTIONS (1)
  - URINARY TRACT INFECTION [None]
